FAERS Safety Report 9929911 (Version 1)
Quarter: 2014Q1

REPORT INFORMATION
  Report Type: Spontaneous
  Country: US (occurrence: US)
  Receive Date: 20140227
  Receipt Date: 20140227
  Transmission Date: 20141002
  Serious: Yes (Other)
  Sender: FDA-Public Use
  Company Number: US-ELI_LILLY_AND_COMPANY-US201402006605

PATIENT
  Age: 26 Year
  Sex: Female

DRUGS (6)
  1. HUMALOG LISPRO [Suspect]
     Indication: TYPE 1 DIABETES MELLITUS
     Dosage: 9 U, EACH MORNING
     Route: 065
  2. HUMALOG LISPRO [Suspect]
     Dosage: 11 U, QD
     Route: 065
  3. HUMALOG LISPRO [Suspect]
     Dosage: 11 U, EACH EVENING
     Route: 065
  4. HUMALOG LISPRO [Suspect]
     Dosage: UNK, PRN
     Route: 065
  5. LANTUS [Concomitant]
     Indication: TYPE 1 DIABETES MELLITUS
     Dosage: 16 U, EACH EVENING
     Route: 065
  6. SYNTHROID [Concomitant]
     Dosage: UNK

REACTIONS (1)
  - Blood glucose increased [Unknown]
